FAERS Safety Report 12345975 (Version 1)
Quarter: 2016Q2

REPORT INFORMATION
  Report Type: Spontaneous
  Country: US (occurrence: None)
  Receive Date: 20160506
  Receipt Date: 20160506
  Transmission Date: 20160815
  Serious: Yes (Life-Threatening)
  Sender: FDA-Public Use
  Company Number: None

PATIENT
  Age: 72 Year
  Sex: Male

DRUGS (1)
  1. ALBUMIN/TECHNETIUM, TC-99M [Suspect]
     Active Substance: TECHNETIUM TC-99M ALBUMIN AGGREGATED
     Indication: PULMONARY EMBOLISM
     Dates: start: 20120329, end: 20120329

REACTIONS (2)
  - Contrast media reaction [None]
  - Laryngeal oedema [None]

NARRATIVE: CASE EVENT DATE: 20120329
